FAERS Safety Report 12596171 (Version 2)
Quarter: 2017Q1

REPORT INFORMATION
  Report Type: Report from Study
  Country: US (occurrence: US)
  Receive Date: 20160726
  Receipt Date: 20170126
  Transmission Date: 20170428
  Serious: No
  Sender: FDA-Public Use
  Company Number: US-AMGEN-USASL2016081334

PATIENT
  Age: 58 Year
  Sex: Female

DRUGS (1)
  1. KYPROLIS [Suspect]
     Active Substance: CARFILZOMIB
     Indication: PLASMA CELL MYELOMA
     Dosage: UNK
     Route: 065
     Dates: start: 201605, end: 20160831

REACTIONS (4)
  - Blood creatinine increased [Recovering/Resolving]
  - Renal disorder [Recovering/Resolving]
  - Feeling abnormal [Unknown]
  - Blister [Recovered/Resolved]

NARRATIVE: CASE EVENT DATE: 2016
